FAERS Safety Report 6860448-2 (Version None)
Quarter: 2010Q3

REPORT INFORMATION
  Report Type: 
  Country: None (occurrence: None)
  Receive Date: 20100720
  Receipt Date: 20100712
  Transmission Date: 20110219
  Serious: Yes (Other)
  Sender: FDA-Public Use
  Company Number: JP-ROCHE-714247

PATIENT
  Sex: Male

DRUGS (3)
  1. XELODA [Suspect]
     Indication: LARGE INTESTINE CARCINOMA
     Dosage: REPORTED AS: XELODA 300
     Route: 048
     Dates: start: 20100218, end: 20100705
  2. CARBOCRIN [Suspect]
     Indication: COLON CANCER
     Dosage: NOTE: DOSAGE IS UNCERTAIN.
     Route: 048
  3. PYDOXAL [Concomitant]
     Route: 048
     Dates: start: 20100218

REACTIONS (1)
  - HYPERTRIGLYCERIDAEMIA [None]
